FAERS Safety Report 14124222 (Version 2)
Quarter: 2017Q4

REPORT INFORMATION
  Report Type: Spontaneous
  Country: US (occurrence: US)
  Receive Date: 20171025
  Receipt Date: 20171127
  Transmission Date: 20180321
  Serious: Yes (Hospitalization)
  Sender: FDA-Public Use
  Company Number: US-VERTEX PHARMACEUTICALS-2017-004761

PATIENT
  Age: 18 Year
  Sex: Male

DRUGS (4)
  1. PROVENTIL [Concomitant]
     Active Substance: ALBUTEROL
  2. MEGESTROL [Concomitant]
     Active Substance: MEGESTROL
  3. ORKAMBI [Suspect]
     Active Substance: IVACAFTOR\LUMACAFTOR
     Indication: CYSTIC FIBROSIS
     Dosage: TWO TABS (200/ 125 MG EACH), BID
     Route: 048
     Dates: start: 20170517
  4. SODIUM CHLORIDE. [Concomitant]
     Active Substance: SODIUM CHLORIDE

REACTIONS (1)
  - Pneumonia [Unknown]

NARRATIVE: CASE EVENT DATE: 201708
